FAERS Safety Report 8363707-X (Version None)
Quarter: 2012Q2

REPORT INFORMATION
  Report Type: 
  Country: None (occurrence: None)
  Receive Date: 20120514
  Receipt Date: 20120501
  Transmission Date: 20120825
  Serious: Yes (Other)
  Sender: FDA-Public Use
  Company Number: 2010MA000804

PATIENT
  Sex: Female
  Weight: 115.6672 kg

DRUGS (64)
  1. METOCLOPRAMIDE [Suspect]
     Indication: GASTRIC DISORDER
     Dosage: 10 MG;QID;PO
     Route: 048
     Dates: start: 20070208, end: 20090624
  2. ALLANDERM-T OINTMENT [Concomitant]
  3. AMOXICILLIN [Concomitant]
  4. BACLOFEN [Concomitant]
  5. CARTIA XT [Concomitant]
  6. CEFUROXIME [Concomitant]
  7. DUONEB [Concomitant]
  8. FLUCONAZOLE [Concomitant]
  9. NIROFURANTOIN [Concomitant]
  10. NORVASC [Concomitant]
  11. PLAVIX [Concomitant]
  12. PROTONIX [Concomitant]
  13. SINGULAIR [Concomitant]
  14. TEMAZEPAM [Concomitant]
  15. ZYRTEC [Concomitant]
  16. AMPICILLIN [Concomitant]
  17. IPRATROPIUM BROMIDE [Concomitant]
  18. LEVOTHYROXINE SODIUM [Concomitant]
  19. MIRAPEX [Concomitant]
  20. NAMENDA [Concomitant]
  21. NITROGLYCERIN [Concomitant]
  22. REFRESH OPHTHALMIC [Concomitant]
  23. BUMETANIDE [Concomitant]
  24. COLCHICINE [Concomitant]
  25. FLOVENT [Concomitant]
  26. GABAPENTIN [Concomitant]
  27. GENTAMICIN [Concomitant]
  28. MUPIROICN OINTMENT [Concomitant]
  29. NEXIUM [Concomitant]
  30. PROMETHAZINE [Concomitant]
  31. PROVIGIL [Concomitant]
  32. SULFACETAMIDE SODIUM [Concomitant]
  33. ALBUTEROL [Concomitant]
  34. CERTAGEN [Concomitant]
  35. CLONAZEPAM [Concomitant]
  36. PREDNISONE [Concomitant]
  37. TOBRADEX [Concomitant]
  38. DILTIAZEM [Concomitant]
  39. EPOGEN [Concomitant]
  40. ISOSORBIDE DINITRATE [Concomitant]
  41. LORAZEPAM [Concomitant]
  42. METHOCARBAMOL [Concomitant]
  43. PAROXETINE [Concomitant]
  44. REQUIP [Concomitant]
  45. CEPHALEXIN [Concomitant]
  46. HYDRALAZINE HCL [Concomitant]
  47. LISINOPRIL [Concomitant]
  48. LOVENOX [Concomitant]
  49. METOPROLOL [Concomitant]
  50. MUCINEX [Concomitant]
  51. PROCRIT [Concomitant]
  52. CARBIDOPA AND LEVODOPA [Concomitant]
  53. FOLIC ACID [Concomitant]
  54. LEVAQUIN [Concomitant]
  55. LOPERAMIDE [Concomitant]
  56. METOLAZONE [Concomitant]
  57. POTASSIUM CHLORIDE [Concomitant]
  58. WARFARIN SODIUM [Concomitant]
  59. EXELON [Concomitant]
  60. FLUTICASONE FUROATE [Concomitant]
  61. FUROSEMIDE [Concomitant]
  62. OMEPRAZOLE [Concomitant]
  63. PROAIR HFA [Concomitant]
  64. TRAZODONE [Concomitant]

REACTIONS (14)
  - EXTRAPYRAMIDAL DISORDER [None]
  - EMOTIONAL DISORDER [None]
  - INJURY [None]
  - TREMOR [None]
  - ANXIETY [None]
  - ECONOMIC PROBLEM [None]
  - COGNITIVE DISORDER [None]
  - WEIGHT DECREASED [None]
  - TARDIVE DYSKINESIA [None]
  - GRUNTING [None]
  - ACTIVITIES OF DAILY LIVING IMPAIRED [None]
  - ASTHENIA [None]
  - DYSKINESIA [None]
  - MOANING [None]
